FAERS Safety Report 11637272 (Version 1)
Quarter: 2015Q4

REPORT INFORMATION
  Report Type: Spontaneous
  Country: US (occurrence: US)
  Receive Date: 20151016
  Receipt Date: 20151016
  Transmission Date: 20160304
  Serious: No
  Sender: FDA-Public Use
  Company Number: US-BAYER-2015-443558

PATIENT
  Age: 67 Year
  Sex: Female

DRUGS (8)
  1. ZYRTEC [Suspect]
     Active Substance: CETIRIZINE HYDROCHLORIDE
     Dosage: UNK
     Dates: start: 2014
  2. FOLIC ACID. [Suspect]
     Active Substance: FOLIC ACID
     Dosage: 2 MG, QD
     Dates: start: 1975
  3. CLARITIN [Suspect]
     Active Substance: LORATADINE
  4. DILANTIN [Suspect]
     Active Substance: PHENYTOIN
  5. CALCIUM W/COLECALCIFEROL [Suspect]
     Active Substance: CALCIUM\CHOLECALCIFEROL
     Dosage: UNK
     Dates: start: 2013
  6. BENADRYL [Suspect]
     Active Substance: DIPHENHYDRAMINE HYDROCHLORIDE
     Dosage: UNK
     Dates: start: 2014
  7. ONE A DAY ESSENTIAL [Suspect]
     Active Substance: VITAMINS
     Dosage: UNK
     Dates: start: 2013
  8. MYSOLINE [Suspect]
     Active Substance: PRIMIDONE
     Dosage: 500 MG, QD

REACTIONS (4)
  - Urticaria [Recovering/Resolving]
  - Skin disorder [Recovering/Resolving]
  - Drug ineffective [None]
  - Pruritus [Recovering/Resolving]

NARRATIVE: CASE EVENT DATE: 201505
